FAERS Safety Report 12468102 (Version 3)
Quarter: 2016Q3

REPORT INFORMATION
  Report Type: Spontaneous
  Country: CA (occurrence: CA)
  Receive Date: 20160615
  Receipt Date: 20160728
  Transmission Date: 20161109
  Serious: Yes (Other)
  Sender: FDA-Public Use
  Company Number: CA-PFIZER INC-2016285125

PATIENT
  Age: 17 Year
  Sex: Female

DRUGS (5)
  1. DEPO-PROVERA [Suspect]
     Active Substance: MEDROXYPROGESTERONE ACETATE
     Dosage: 150 MG/ML, CYCLIC (EVERY 10 WEEKS)
  2. EPIVAL /00017001/ [Concomitant]
     Active Substance: DIAZEPAM
     Dosage: UNK
  3. DILANTIN [Concomitant]
     Active Substance: PHENYTOIN
     Dosage: UNK
  4. DEPO-PROVERA [Suspect]
     Active Substance: MEDROXYPROGESTERONE ACETATE
     Indication: CONTRACEPTION
     Dosage: 150 MG/ML, EVERY 3 MONTHS (12 WEEKS)
     Dates: start: 20140623
  5. DEPO-PROVERA [Suspect]
     Active Substance: MEDROXYPROGESTERONE ACETATE
     Dosage: 150 MG/ML, CYCLIC (EVERY 8 WEEKS
     Dates: end: 20160530

REACTIONS (6)
  - Abortion spontaneous [Recovered/Resolved]
  - Inappropriate schedule of drug administration [Unknown]
  - Haemorrhage in pregnancy [Recovered/Resolved]
  - Drug ineffective [Unknown]
  - Metrorrhagia [Recovered/Resolved]
  - Unintended pregnancy [Recovered/Resolved]

NARRATIVE: CASE EVENT DATE: 20140628
